FAERS Safety Report 4648060-7 (Version None)
Quarter: 2005Q2

REPORT INFORMATION
  Report Type: 
  Country: None (occurrence: None)
  Receive Date: 20050426
  Receipt Date: 20050418
  Transmission Date: 20051028
  Serious: Yes (Hospitalization)
  Sender: FDA-Public Use
  Company Number: 163-20785-05040351

PATIENT
  Sex: Female

DRUGS (1)
  1. THALOMID [Suspect]
     Indication: MULTIPLE MYELOMA
     Dosage: 200-400MG, DAILY, ORAL
     Route: 048
     Dates: start: 20040602, end: 20050126

REACTIONS (5)
  - ASPIRATION [None]
  - ASTHENIA [None]
  - CHRONIC OBSTRUCTIVE AIRWAYS DISEASE EXACERBATED [None]
  - DYSPHAGIA [None]
  - RESPIRATORY FAILURE [None]
